FAERS Safety Report 9174026 (Version 1)
Quarter: 2013Q1

REPORT INFORMATION
  Report Type: Spontaneous
  Country: US (occurrence: US)
  Receive Date: 20130320
  Receipt Date: 20130320
  Transmission Date: 20140127
  Serious: No
  Sender: FDA-Public Use
  Company Number: US-PFIZER INC-2013088723

PATIENT
  Age: 83 Year
  Sex: Female
  Weight: 74.8 kg

DRUGS (4)
  1. PREMARIN [Suspect]
     Indication: CYSTITIS
     Dosage: UNK, 2X/WEEK
     Route: 067
  2. NAPROSYN [Concomitant]
     Dosage: UNK
  3. SPIRONOLACTONE [Concomitant]
     Indication: HYPERTENSION
     Dosage: UNK
  4. LISINOPRIL [Concomitant]
     Indication: HYPERTENSION
     Dosage: UNK

REACTIONS (3)
  - Anaemia [Unknown]
  - Blood iron decreased [Unknown]
  - Body height decreased [Unknown]
